FAERS Safety Report 18398355 (Version 2)
Quarter: 2021Q3

REPORT INFORMATION
  Report Type: Spontaneous
  Country: US (occurrence: US)
  Receive Date: 20201019
  Receipt Date: 20210713
  Transmission Date: 20211014
  Serious: Yes (Other)
  Sender: FDA-Public Use
  Company Number: US-BAUSCH-BL-2020-029419

PATIENT
  Age: 71 Year
  Sex: Male
  Weight: 76.27 kg

DRUGS (2)
  1. RHOPRESSA [Suspect]
     Active Substance: NETARSUDIL MESYLATE
     Indication: PRODUCT USED FOR UNKNOWN INDICATION
     Route: 065
  2. BRIMONIDINE TARTRATE OPHTHALMIC SOLUTION 0.2% [Suspect]
     Active Substance: BRIMONIDINE TARTRATE
     Indication: PRODUCT USED FOR UNKNOWN INDICATION
     Route: 065

REACTIONS (4)
  - Erythema of eyelid [Unknown]
  - Eye haemorrhage [Unknown]
  - Eyelid margin crusting [Unknown]
  - Eye irritation [Unknown]
